FAERS Safety Report 5729865-8 (Version None)
Quarter: 2008Q2

REPORT INFORMATION
  Report Type: 
  Country: None (occurrence: None)
  Receive Date: 20080502
  Receipt Date: 20080423
  Transmission Date: 20081010
  Serious: Yes (Hospitalization, Other)
  Sender: FDA-Public Use
  Company Number: 163-21880-08041627

PATIENT
  Age: 83 Year
  Sex: Male
  Weight: 115 kg

DRUGS (2)
  1. REVLIMID [Suspect]
     Indication: PROSTATE CANCER
     Dosage: 25 MG, 1 IN 1 D, ORAL
     Route: 048
     Dates: start: 20080408, end: 20080415
  2. KETOCONAZOLE [Suspect]
     Indication: PROSTATE CANCER
     Dosage: 1200 MG, 3 IN 1 D, ORAL
     Route: 048
     Dates: start: 20080408, end: 20080415

REACTIONS (7)
  - DEEP VEIN THROMBOSIS [None]
  - DIZZINESS [None]
  - HYPERTENSION [None]
  - INTERNATIONAL NORMALISED RATIO INCREASED [None]
  - PROTHROMBIN TIME PROLONGED [None]
  - RASH ERYTHEMATOUS [None]
  - SYNCOPE [None]
